FAERS Safety Report 26018164 (Version 2)
Quarter: 2025Q4

REPORT INFORMATION
  Report Type: Report from Study
  Country: US (occurrence: US)
  Receive Date: 20251110
  Receipt Date: 20251205
  Transmission Date: 20260118
  Serious: Yes (Death, Other)
  Sender: ALEXION PHARMACEUTICALS
  Company Number: US-AstraZeneca-CH-00988122A

PATIENT
  Age: 65 Year
  Sex: Male
  Weight: 221 kg

DRUGS (8)
  1. DAPAGLIFLOZIN [Suspect]
     Active Substance: DAPAGLIFLOZIN
     Dosage: 5 MILLIGRAM
  2. AMIODARONE [Concomitant]
     Active Substance: AMIODARONE
     Dosage: 400 MILLIGRAM, QD
  3. ASPIRIN [Concomitant]
     Active Substance: ASPIRIN
     Dosage: 81 MILLIGRAM, QD
  4. ATORVASTATIN [Concomitant]
     Active Substance: ATORVASTATIN
     Dosage: 40 MILLIGRAM, QD
  5. LOSARTAN [Concomitant]
     Active Substance: LOSARTAN
     Dosage: 100 MILLIGRAM, QD
  6. METOPROLOL SUCCINATE [Concomitant]
     Active Substance: METOPROLOL SUCCINATE
     Dosage: 1 DOSAGE FORM, QD
  7. NITROGLYCERIN [Concomitant]
     Active Substance: NITROGLYCERIN
     Dosage: PLACE 0.4 MG UNDER THE TONGUE EVERY 5 (FIVE) MINUTES AS NEEDED
  8. TRIAMCINOLONE ACETONIDE [Concomitant]
     Active Substance: TRIAMCINOLONE ACETONIDE
     Dosage: APPLY 1 APPLICATION TOPICALLY TWICE A DAY

REACTIONS (1)
  - Death [Fatal]

NARRATIVE: CASE EVENT DATE: 20250428
